FAERS Safety Report 9052294 (Version 1)
Quarter: 2013Q1

REPORT INFORMATION
  Report Type: Report from Study
  Country: AT (occurrence: AT)
  Receive Date: 20130206
  Receipt Date: 20130206
  Transmission Date: 20140127
  Serious: Yes (Life-Threatening, Hospitalization)
  Sender: FDA-Public Use
  Company Number: AT-SANOFI-AVENTIS-2013SA007814

PATIENT
  Age: 82 Year
  Sex: Male
  Weight: 77 kg

DRUGS (8)
  1. ELOXATIN [Suspect]
     Indication: PRODUCT USED FOR UNKNOWN INDICATION
     Dosage: FREQUENCY: EVERY 2 WEEKS
     Route: 042
     Dates: start: 20100921, end: 20101130
  2. AVASTIN [Suspect]
     Indication: PRODUCT USED FOR UNKNOWN INDICATION
     Dosage: FREQUENCY: EVERY 2 WEEKS
     Route: 042
     Dates: start: 20100921, end: 20120907
  3. AVASTIN [Suspect]
     Indication: PRODUCT USED FOR UNKNOWN INDICATION
     Dosage: FREQUENCY: EVERY 2 WEEKS
     Route: 042
     Dates: end: 20121025
  4. IRINOTECAN [Suspect]
     Indication: PRODUCT USED FOR UNKNOWN INDICATION
     Dosage: FREQUENCY: EVERY 2 WEEKS
     Route: 065
     Dates: start: 20100921, end: 20101214
  5. DILATREND [Concomitant]
  6. ENALAPRIL [Concomitant]
  7. NOVALGIN [Concomitant]
     Dosage: DOSE: 4 X 20 GGT
  8. AMLODIPINE [Concomitant]
     Dates: start: 20120907

REACTIONS (1)
  - Acute myocardial infarction [Recovered/Resolved]
